FAERS Safety Report 4558628-4 (Version None)
Quarter: 2005Q1

REPORT INFORMATION
  Report Type: 
  Country: None (occurrence: None)
  Receive Date: 20050119
  Receipt Date: 20050106
  Transmission Date: 20050727
  Serious: Yes (Other)
  Sender: FDA-Public Use
  Company Number: 2004112542

PATIENT
  Sex: Male
  Weight: 89.3586 kg

DRUGS (7)
  1. VIAGRA [Suspect]
     Indication: ERECTILE DYSFUNCTION
     Dosage: 100 MG (100 MG, AS NECESSARY), ORAL
     Route: 048
  2. ATORVASTATIN (ATORVASTATIN) [Concomitant]
  3. INSULIN [Concomitant]
  4. INDOMETHACIN [Concomitant]
  5. ASPIRIN [Concomitant]
  6. FLUNISOLIDE (FLUNISOLIDE) [Concomitant]
  7. IPRATROPIUM BROMIDE [Concomitant]

REACTIONS (8)
  - ARTHRALGIA [None]
  - BONE DISORDER [None]
  - BURSITIS [None]
  - CARTILAGE INJURY [None]
  - DRUG EFFECT DECREASED [None]
  - MEDICAL DEVICE COMPLICATION [None]
  - PHARMACEUTICAL PRODUCT COMPLAINT [None]
  - SURGICAL PROCEDURE REPEATED [None]
